FAERS Safety Report 17521828 (Version 2)
Quarter: 2020Q1

REPORT INFORMATION
  Report Type: Spontaneous
  Country: NZ (occurrence: NZ)
  Receive Date: 20200310
  Receipt Date: 20200317
  Transmission Date: 20200409
  Serious: Yes (Other)
  Sender: FDA-Public Use
  Company Number: NZ-MYLANLABS-2020M1024093

PATIENT
  Age: 16 Year
  Sex: Male

DRUGS (2)
  1. ENLAFAX XR [Suspect]
     Active Substance: VENLAFAXINE HYDROCHLORIDE
     Dosage: 37.5 MILLIGRAM
  2. ENLAFAX XR [Suspect]
     Active Substance: VENLAFAXINE HYDROCHLORIDE
     Indication: PRODUCT USED FOR UNKNOWN INDICATION
     Dosage: 225 MILLIGRAM

REACTIONS (15)
  - Mental disorder [Unknown]
  - Vitreous floaters [Unknown]
  - Hyperhidrosis [Unknown]
  - Insomnia [Unknown]
  - Serotonin syndrome [Unknown]
  - Vision blurred [Unknown]
  - Heart rate increased [Unknown]
  - Wrong technique in product usage process [Unknown]
  - Mydriasis [Unknown]
  - Product dose omission [Unknown]
  - Nausea [Unknown]
  - Headache [Unknown]
  - Tremor [Unknown]
  - Product use issue [Unknown]
  - Drug ineffective [Unknown]
